FAERS Safety Report 9683519 (Version 1)
Quarter: 2013Q4

REPORT INFORMATION
  Report Type: Report from Study
  Country: KR (occurrence: KR)
  Receive Date: 20131112
  Receipt Date: 20131112
  Transmission Date: 20140711
  Serious: No
  Sender: FDA-Public Use
  Company Number: PHHY2013KR126484

PATIENT
  Sex: Male

DRUGS (3)
  1. TASIGNA [Suspect]
     Indication: CHRONIC MYELOID LEUKAEMIA
     Dosage: 400 MG, BID
     Route: 048
     Dates: start: 201207
  2. TASIGNA [Suspect]
     Dosage: 200 MG, QD
     Route: 048
  3. TASIGNA [Suspect]
     Dosage: 800 MG, BID
     Route: 048
     Dates: start: 201309

REACTIONS (3)
  - Dry skin [Unknown]
  - Skin disorder [Unknown]
  - Inappropriate schedule of drug administration [Unknown]
